FAERS Safety Report 13299021 (Version 1)
Quarter: 2017Q1

REPORT INFORMATION
  Report Type: Spontaneous
  Country: US (occurrence: US)
  Receive Date: 20170306
  Receipt Date: 20170306
  Transmission Date: 20170428
  Serious: No
  Sender: FDA-Public Use
  Company Number: US-GILEAD-2017-0259901

PATIENT
  Age: 53 Year
  Sex: Male
  Weight: 78.29 kg

DRUGS (6)
  1. MAXALT [Concomitant]
     Active Substance: RIZATRIPTAN BENZOATE
  2. VIAGRA [Concomitant]
     Active Substance: SILDENAFIL CITRATE
  3. EPCLUSA [Suspect]
     Active Substance: SOFOSBUVIR\VELPATASVIR
     Indication: CHRONIC HEPATITIS C
     Dosage: UNK
     Route: 065
     Dates: start: 20170218
  4. ALBUTEROL                          /00139501/ [Concomitant]
     Active Substance: ALBUTEROL
     Indication: WHEEZING
  5. VITAMIN B [Concomitant]
     Active Substance: VITAMIN B
  6. NABUMETONE. [Concomitant]
     Active Substance: NABUMETONE

REACTIONS (5)
  - Decreased appetite [Unknown]
  - Myalgia [Unknown]
  - Night sweats [Unknown]
  - Pyrexia [Unknown]
  - Nausea [Unknown]

NARRATIVE: CASE EVENT DATE: 20170218
